FAERS Safety Report 12216914 (Version 6)
Quarter: 2016Q3

REPORT INFORMATION
  Report Type: Spontaneous
  Country: US (occurrence: US)
  Receive Date: 20160329
  Receipt Date: 20160707
  Transmission Date: 20161109
  Serious: Yes (Hospitalization, Other)
  Sender: FDA-Public Use
  Company Number: US-PFIZER INC-2016167649

PATIENT
  Age: 78 Year
  Sex: Male
  Weight: 77.98 kg

DRUGS (11)
  1. SUTENT [Suspect]
     Active Substance: SUNITINIB MALATE
     Dosage: UNK, CYCLIC (3 WEEKS ON /1 WEEK OFF)
  2. CARAFATE [Concomitant]
     Active Substance: SUCRALFATE
     Dosage: UNK
  3. SUTENT [Suspect]
     Active Substance: SUNITINIB MALATE
     Dosage: 25 MG, DAILY
     Dates: start: 20160605
  4. LEVOTHYROXINE. [Concomitant]
     Active Substance: LEVOTHYROXINE
     Dosage: UNK
  5. LISINOPRIL. [Concomitant]
     Active Substance: LISINOPRIL
     Dosage: UNK
  6. KEPPRA [Concomitant]
     Active Substance: LEVETIRACETAM
     Dosage: UNK
  7. FLOMAX [Concomitant]
     Active Substance: TAMSULOSIN HYDROCHLORIDE
     Dosage: UNK
  8. SUTENT [Suspect]
     Active Substance: SUNITINIB MALATE
     Indication: GASTROINTESTINAL STROMAL TUMOUR
     Dosage: 25 MG, DAILY
     Dates: start: 20150301
  9. FLUTICASON [Concomitant]
     Active Substance: FLUTICASONE\FLUTICASONE PROPIONATE
     Dosage: UNK
     Route: 045
  10. PRILOSEC [Concomitant]
     Active Substance: OMEPRAZOLE MAGNESIUM
     Dosage: UNK
  11. CRESTOR [Concomitant]
     Active Substance: ROSUVASTATIN CALCIUM
     Dosage: UNK

REACTIONS (17)
  - Pruritus [Unknown]
  - Fatigue [Unknown]
  - Oesophageal oedema [Recovering/Resolving]
  - Petechiae [Unknown]
  - Drug dose omission [Unknown]
  - Nocturia [Unknown]
  - Oesophagitis [Unknown]
  - Dysphagia [Unknown]
  - Oesophageal irritation [Unknown]
  - Feeling cold [Unknown]
  - Eye swelling [Unknown]
  - Skin irritation [Recovered/Resolved]
  - Epistaxis [Unknown]
  - Skin reaction [Unknown]
  - Erythema [Recovered/Resolved]
  - Gastrointestinal haemorrhage [Unknown]
  - Syncope [Unknown]
